FAERS Safety Report 25551018 (Version 1)
Quarter: 2025Q3

REPORT INFORMATION
  Report Type: Spontaneous
  Country: US (occurrence: US)
  Receive Date: 20250714
  Receipt Date: 20250714
  Transmission Date: 20251021
  Serious: No
  Sender: INTRA-CELLULAR THERAPIES
  Company Number: US-INTRA-CELLULAR THERAPIES, INC.-2025ICT00840

PATIENT
  Sex: Female

DRUGS (6)
  1. CAPLYTA [Suspect]
     Active Substance: LUMATEPERONE
     Indication: Bipolar disorder
  2. AUSTEDO [Suspect]
     Active Substance: DEUTETRABENAZINE
  3. AUSTEDO [Suspect]
     Active Substance: DEUTETRABENAZINE
  4. AUSTEDO [Suspect]
     Active Substance: DEUTETRABENAZINE
  5. ABILIFY [Suspect]
     Active Substance: ARIPIPRAZOLE
  6. CYMBALTA [Concomitant]
     Active Substance: DULOXETINE HYDROCHLORIDE

REACTIONS (1)
  - Akathisia [Not Recovered/Not Resolved]
